FAERS Safety Report 13739739 (Version 1)
Quarter: 2017Q3

REPORT INFORMATION
  Report Type: Spontaneous
  Country: JP (occurrence: JP)
  Receive Date: 20170710
  Receipt Date: 20170710
  Transmission Date: 20171127
  Serious: Yes (Hospitalization)
  Sender: FDA-Public Use
  Company Number: PHJP1997JP003895

PATIENT
  Age: 53 Year
  Sex: Female
  Weight: 62 kg

DRUGS (4)
  1. SERENAL//OXAZOLAM [Suspect]
     Active Substance: OXAZOLAM
     Indication: NEUROSIS
     Dosage: 30MG
     Route: 048
     Dates: start: 19970821, end: 19970916
  2. NEUER [Suspect]
     Active Substance: CETRAXATE HYDROCHLORIDE
     Indication: CHRONIC GASTRITIS
     Dosage: 600MG
     Route: 048
     Dates: start: 19970821
  3. HYDERGINE [Suspect]
     Active Substance: ERGOLOID MESYLATES
     Indication: HYPERTENSIVE ENCEPHALOPATHY
     Dosage: 6MG
     Route: 048
     Dates: start: 19970821, end: 19970916
  4. ADALAT [Suspect]
     Active Substance: NIFEDIPINE
     Indication: HYPERTENSION
     Dosage: 15MG
     Route: 048
     Dates: start: 19970821, end: 19970916

REACTIONS (3)
  - Hepatic function abnormal [None]
  - Jaundice [None]
  - Liver disorder [Recovering/Resolving]

NARRATIVE: CASE EVENT DATE: 19970914
